FAERS Safety Report 6866491-1 (Version None)
Quarter: 2010Q3

REPORT INFORMATION
  Report Type: 
  Country: None (occurrence: None)
  Receive Date: 20100722
  Receipt Date: 20100709
  Transmission Date: 20110219
  Serious: Yes (Other)
  Sender: FDA-Public Use
  Company Number: PHHY2010ZA46051

PATIENT
  Sex: Male

DRUGS (5)
  1. LESCOL [Suspect]
     Dosage: UNK
  2. DIOVAN HCT [Concomitant]
     Dosage: UNK
  3. ATORVASTATIN [Concomitant]
     Dosage: UNK
  4. GLUCOPHAGE - SLOW RELEASE [Concomitant]
     Dosage: UNK
     Dates: start: 20100101
  5. TAREG [Concomitant]
     Dosage: UNK
     Dates: start: 20100501

REACTIONS (1)
  - DIABETES MELLITUS [None]
